FAERS Safety Report 16799565 (Version 1)
Quarter: 2019Q3

REPORT INFORMATION
  Report Type: Spontaneous
  Country: CN (occurrence: CN)
  Receive Date: 20190912
  Receipt Date: 20190912
  Transmission Date: 20191005
  Serious: Yes (Hospitalization)
  Sender: FDA-Public Use
  Company Number: PHHY2019CN210998

PATIENT
  Age: 17 Year
  Sex: Male

DRUGS (1)
  1. TEGRETOL [Suspect]
     Active Substance: CARBAMAZEPINE
     Indication: ATAXIA
     Dosage: 0.2 G, TID
     Route: 048
     Dates: start: 20190815, end: 20190903

REACTIONS (1)
  - Ataxia [Recovering/Resolving]

NARRATIVE: CASE EVENT DATE: 20190830
